FAERS Safety Report 5068973-4 (Version None)
Quarter: 2006Q3

REPORT INFORMATION
  Report Type: 
  Country: None (occurrence: None)
  Receive Date: 20060728
  Receipt Date: 20060710
  Transmission Date: 20061208
  Serious: No
  Sender: FDA-Public Use
  Company Number: IE200605006457

PATIENT
  Age: 73 Year
  Sex: Female
  Weight: 63.5 kg

DRUGS (3)
  1. CYMBALTA [Suspect]
     Indication: DEPRESSION
     Dosage: 60 MG ORAL
     Route: 048
     Dates: start: 20051128, end: 20060519
  2. ARICEPT [Concomitant]
  3. CHLORPROMAZINE [Concomitant]

REACTIONS (1)
  - BLOOD ALKALINE PHOSPHATASE INCREASED [None]
